FAERS Safety Report 5921484-3 (Version None)
Quarter: 2008Q4

REPORT INFORMATION
  Report Type: 
  Country: None (occurrence: None)
  Receive Date: 20081016
  Receipt Date: 20081016
  Transmission Date: 20090506
  Serious: Yes (Other)
  Sender: FDA-Public Use
  Company Number: None

PATIENT
  Sex: Male
  Weight: 52.6173 kg

DRUGS (3)
  1. CYMBALTA [Suspect]
     Indication: ANXIETY
     Dosage: 120 MG PO DAILY
     Route: 048
     Dates: start: 20080409, end: 20080822
  2. CYMBALTA [Suspect]
     Indication: DEPRESSION
     Dosage: 120 MG PO DAILY
     Route: 048
     Dates: start: 20080409, end: 20080822
  3. PAROXETINE HCL [Concomitant]

REACTIONS (7)
  - APATHY [None]
  - DECREASED APPETITE [None]
  - MALNUTRITION [None]
  - MEMORY IMPAIRMENT [None]
  - POLLAKIURIA [None]
  - SOCIAL AVOIDANT BEHAVIOUR [None]
  - SUICIDAL IDEATION [None]
